FAERS Safety Report 4363819-1 (Version None)
Quarter: 2004Q2

REPORT INFORMATION
  Report Type: 
  Country: None (occurrence: None)
  Receive Date: 20040521
  Receipt Date: 20040421
  Transmission Date: 20050107
  Serious: No
  Sender: FDA-Public Use
  Company Number: 206035

PATIENT
  Age: 62 Year
  Sex: Female
  Weight: 48.1 kg

DRUGS (6)
  1. HERCEPTIN [Suspect]
     Indication: BREAST CANCER
     Dosage: SEE IMAGE
     Route: 042
     Dates: start: 19960319, end: 20021209
  2. HERCEPTIN [Suspect]
     Indication: BREAST CANCER
     Dosage: SEE IMAGE
     Route: 042
     Dates: start: 20021210, end: 20040127
  3. PREVACID [Concomitant]
  4. CAPTOPRIL [Concomitant]
  5. DIGOXIN [Concomitant]
  6. GLYBURIDE [Concomitant]

REACTIONS (3)
  - ADENOCARCINOMA PANCREAS [None]
  - BENIGN COLONIC POLYP [None]
  - NEOPLASM MALIGNANT [None]
